FAERS Safety Report 16347615 (Version 1)
Quarter: 2019Q3

REPORT INFORMATION
  Report Type: Spontaneous
  Country: US (occurrence: US)
  Receive Date: 20190522
  Receipt Date: 20190522
  Transmission Date: 20191004
  Serious: Yes (Hospitalization)
  Sender: FDA-Public Use
  Company Number: None

PATIENT
  Age: 68 Year
  Sex: Female

DRUGS (9)
  1. METHOTREXATE. [Concomitant]
     Active Substance: METHOTREXATE
  2. FLUTICASONE SPR [Concomitant]
  3. SYNTHROID [Concomitant]
     Active Substance: LEVOTHYROXINE SODIUM
  4. ONDANSETRON [Concomitant]
     Active Substance: ONDANSETRON
  5. HYDROCO/APAP [Concomitant]
     Active Substance: ACETAMINOPHEN\HYDROCODONE
  6. CELECOXIB. [Concomitant]
     Active Substance: CELECOXIB
  7. ACTEMRA [Suspect]
     Active Substance: TOCILIZUMAB
     Indication: RHEUMATOID ARTHRITIS
     Dosage: ?          OTHER FREQUENCY:EVERY WEEK;?
     Route: 058
     Dates: start: 20161109
  8. DEXILANT [Concomitant]
     Active Substance: DEXLANSOPRAZOLE
  9. PAZEO DROP [Concomitant]

REACTIONS (6)
  - Fall [None]
  - Cerebrovascular accident [None]
  - Head injury [None]
  - Loss of consciousness [None]
  - Transient ischaemic attack [None]
  - Rib fracture [None]

NARRATIVE: CASE EVENT DATE: 20190501
